FAERS Safety Report 8482053-7 (Version None)
Quarter: 2012Q2

REPORT INFORMATION
  Report Type: 
  Country: None (occurrence: None)
  Receive Date: 20120402
  Receipt Date: 20110520
  Transmission Date: 20120825
  Serious: Yes (Hospitalization, Other)
  Sender: FDA-Public Use
  Company Number: A-US2011-49213

PATIENT
  Age: 83 Year
  Sex: Female

DRUGS (1)
  1. TRACLEER (BOSENTRAN) TABLET [Suspect]
     Indication: PULMONARY ARTERIAL HYPERTENSION
     Dosage: UNK, ORAL
     Route: 047
     Dates: start: 20100323

REACTIONS (1)
  - LOSS OF CONSCIOUSNESS [None]
